FAERS Safety Report 8514255-5 (Version None)
Quarter: 2012Q3

REPORT INFORMATION
  Report Type: 
  Country: None (occurrence: None)
  Receive Date: 20120717
  Receipt Date: 20120712
  Transmission Date: 20120928
  Serious: Yes (Other)
  Sender: FDA-Public Use
  Company Number: BR-PFIZER INC-2012169361

PATIENT
  Age: 52 Year
  Sex: Female

DRUGS (2)
  1. EFFEXOR XR [Suspect]
     Indication: DEPRESSION
     Dosage: 150 MG (ONE CAPSULE), 1X/DAY
     Route: 048
     Dates: start: 20100712
  2. LIPLESS [Concomitant]

REACTIONS (4)
  - DEPRESSION [None]
  - BLOOD GLUCOSE INCREASED [None]
  - BEDRIDDEN [None]
  - NERVOUS SYSTEM DISORDER [None]
